FAERS Safety Report 14576997 (Version 1)
Quarter: 2018Q1

REPORT INFORMATION
  Report Type: Spontaneous
  Country: US (occurrence: US)
  Receive Date: 20180225
  Receipt Date: 20180225
  Transmission Date: 20180509
  Serious: No
  Sender: FDA-Public Use
  Company Number: None

PATIENT
  Age: 59 Year
  Sex: Female
  Weight: 49.5 kg

DRUGS (1)
  1. MIRVASO [Suspect]
     Active Substance: BRIMONIDINE TARTRATE
     Indication: ROSACEA
     Dosage: ?          QUANTITY:1 DROP;?
     Route: 061
     Dates: start: 20180210, end: 20180223

REACTIONS (3)
  - Swelling face [None]
  - Skin swelling [None]
  - Erythema [None]

NARRATIVE: CASE EVENT DATE: 20180224
